FAERS Safety Report 24987284 (Version 1)
Quarter: 2025Q1

REPORT INFORMATION
  Report Type: Report from Study
  Country: US (occurrence: US)
  Receive Date: 20250219
  Receipt Date: 20250219
  Transmission Date: 20250409
  Serious: Yes (Hospitalization, Other)
  Sender: EISAI
  Company Number: US-Eisai-EC-2025-184234

PATIENT
  Age: 70 Year
  Sex: Male

DRUGS (4)
  1. LENVIMA [Suspect]
     Active Substance: LENVATINIB
     Indication: Thyroid cancer
     Dates: start: 20231122, end: 20240209
  2. LENVIMA [Suspect]
     Active Substance: LENVATINIB
     Dates: start: 20240210, end: 202403
  3. LENVIMA [Suspect]
     Active Substance: LENVATINIB
     Dates: start: 202403
  4. LENVIMA [Suspect]
     Active Substance: LENVATINIB
     Dates: start: 202410

REACTIONS (2)
  - Pulmonary oedema [Recovered/Resolved]
  - Dysphagia [Not Recovered/Not Resolved]

NARRATIVE: CASE EVENT DATE: 20250101
